FAERS Safety Report 8842857 (Version 1)
Quarter: 2012Q4

REPORT INFORMATION
  Report Type: 
  Country: US (occurrence: US)
  Receive Date: 20121016
  Receipt Date: 20121016
  Transmission Date: 20130627
  Serious: Yes (Death, Hospitalization)
  Sender: FDA-Public Use
  Company Number: US-ASTRAZENECA-2012SE78550

PATIENT
  Sex: Female

DRUGS (4)
  1. BRILINTA [Suspect]
     Indication: STENT PLACEMENT
     Dosage: 180 MG LOADING DOSE
     Route: 048
  2. ASPIRIN [Suspect]
     Indication: STENT PLACEMENT
     Route: 048
  3. ANGIOMAX [Suspect]
     Indication: STENT PLACEMENT
     Route: 065
  4. LOVENOX [Suspect]
     Route: 058

REACTIONS (1)
  - Haemorrhage intracranial [Fatal]
